FAERS Safety Report 21651973 (Version 1)
Quarter: 2022Q4

REPORT INFORMATION
  Report Type: Report from Study
  Country: GB (occurrence: GB)
  Receive Date: 20221128
  Receipt Date: 20221128
  Transmission Date: 20230113
  Serious: Yes (Disabling, Other)
  Sender: FDA-Public Use
  Company Number: GB-MHRA-MED-202211172121373840-FCKQZ

PATIENT
  Age: 22 Year
  Sex: Female
  Weight: 52 kg

DRUGS (2)
  1. LATUDA [Suspect]
     Active Substance: LURASIDONE HYDROCHLORIDE
     Indication: Schizophrenia
     Dosage: 111 MG ONCE A DAY AT NIGHT
     Route: 048
  2. SERTRALINE [Concomitant]
     Active Substance: SERTRALINE HYDROCHLORIDE
     Indication: Depression
     Route: 065
     Dates: end: 20220930

REACTIONS (9)
  - Hallucination [Not Recovered/Not Resolved]
  - Apathy [Not Recovered/Not Resolved]
  - Disorientation [Not Recovered/Not Resolved]
  - Initial insomnia [Recovered/Resolved]
  - Mood altered [Not Recovered/Not Resolved]
  - Decreased interest [Not Recovered/Not Resolved]
  - Lip dry [Not Recovered/Not Resolved]
  - Agitation [Not Recovered/Not Resolved]
  - Decreased appetite [Not Recovered/Not Resolved]
